FAERS Safety Report 14650262 (Version 4)
Quarter: 2018Q2

REPORT INFORMATION
  Report Type: Report from Study
  Country: US (occurrence: US)
  Receive Date: 20180316
  Receipt Date: 20180407
  Transmission Date: 20180711
  Serious: Yes (Hospitalization, Other)
  Sender: FDA-Public Use
  Company Number: PHHO2018US003427

PATIENT
  Sex: Female
  Weight: 86.2 kg

DRUGS (2)
  1. DOCETAXEL. [Suspect]
     Active Substance: DOCETAXEL
     Indication: NON-SMALL CELL LUNG CANCER
     Dosage: 155 MG, UNK
     Route: 042
     Dates: start: 20180110, end: 20180110
  2. TRAMETINIB [Suspect]
     Active Substance: TRAMETINIB
     Indication: NON-SMALL CELL LUNG CANCER
     Dosage: 2 MG, QD
     Route: 048
     Dates: start: 20180110, end: 20180125

REACTIONS (2)
  - Cerebrovascular accident [Recovered/Resolved]
  - Pneumonia [Recovered/Resolved]

NARRATIVE: CASE EVENT DATE: 20180121
